FAERS Safety Report 7340581-1 (Version None)
Quarter: 2011Q1

REPORT INFORMATION
  Report Type: 
  Country: None (occurrence: None)
  Receive Date: 20110309
  Receipt Date: 20110224
  Transmission Date: 20110831
  Serious: Yes (Hospitalization)
  Sender: FDA-Public Use
  Company Number: PHHO2011IN03033

PATIENT
  Sex: Male

DRUGS (8)
  1. MYFORTIC [Suspect]
     Indication: RENAL TRANSPLANT
     Dosage: 360 MG, BID
     Route: 048
     Dates: start: 20110203, end: 20110213
  2. MYFORTIC [Suspect]
     Dosage: 720 MG, DAILY
     Route: 048
     Dates: start: 20110226
  3. PROGRAF [Suspect]
     Indication: RENAL TRANSPLANT
     Dosage: 2.5 MG, BID
     Route: 048
     Dates: start: 20110203
  4. RANTAC [Concomitant]
     Indication: ANTACID THERAPY
  5. SEPTRAN [Concomitant]
     Indication: PROPHYLAXIS
  6. MYFORTIC [Suspect]
     Dosage: UNK
     Route: 048
     Dates: start: 20110225
  7. PREDNISOLONE [Concomitant]
     Indication: RENAL TRANSPLANT
     Dosage: 20 MG, QD
     Route: 048
     Dates: start: 20110205
  8. NO TREATMENT RECEIVED [Suspect]
     Indication: RENAL TRANSPLANT
     Dosage: NO TREATMENT

REACTIONS (12)
  - GASTROENTERITIS [None]
  - BLOOD UREA INCREASED [None]
  - CYTOMEGALOVIRUS COLITIS [None]
  - DIARRHOEA [None]
  - ABDOMINAL PAIN [None]
  - ENTEROCOLITIS INFECTIOUS [None]
  - VOMITING [None]
  - BACK PAIN [None]
  - TACHYCARDIA [None]
  - ENTERITIS INFECTIOUS [None]
  - PYREXIA [None]
  - DEHYDRATION [None]
